FAERS Safety Report 5212674-6 (Version None)
Quarter: 2007Q1

REPORT INFORMATION
  Report Type: 
  Country: None (occurrence: None)
  Receive Date: 20061107
  Receipt Date: 20060724
  Transmission Date: 20070707
  Serious: No
  Sender: FDA-Public Use
  Company Number: 200511101BWH

PATIENT
  Sex: Male

DRUGS (9)
  1. LEVITRA [Suspect]
     Indication: ERECTILE DYSFUNCTION
     Dosage: SEE IMAGE
     Route: 048
     Dates: start: 20050531
  2. INSULIN [Concomitant]
  3. GLUCOPHAGE [Concomitant]
  4. MAVIK [Concomitant]
  5. BUSPAR [Concomitant]
  6. BENICAR [Concomitant]
  7. ADVAIR DISKUS 100/50 [Concomitant]
  8. ZOLOFT [Concomitant]
  9. NEURONTIN [Concomitant]

REACTIONS (2)
  - ERECTILE DYSFUNCTION [None]
  - VISION BLURRED [None]
